FAERS Safety Report 6013253-3 (Version None)
Quarter: 2008Q4

REPORT INFORMATION
  Report Type: 
  Country: None (occurrence: None)
  Receive Date: 20081219
  Receipt Date: 20081212
  Transmission Date: 20090506
  Serious: Yes (Hospitalization, Other)
  Sender: FDA-Public Use
  Company Number: TW-ASTRAZENECA-2008AP09600

PATIENT
  Age: 50 Year

DRUGS (1)
  1. CRESTOR [Suspect]
     Route: 048

REACTIONS (3)
  - EYE SWELLING [None]
  - MUSCULAR WEAKNESS [None]
  - MYASTHENIA GRAVIS [None]
